FAERS Safety Report 6646452-8 (Version None)
Quarter: 2010Q1

REPORT INFORMATION
  Report Type: 
  Country: None (occurrence: None)
  Receive Date: 20100323
  Receipt Date: 20100318
  Transmission Date: 20100710
  Serious: Yes (Death)
  Sender: FDA-Public Use
  Company Number: CN-ROCHE-692138

PATIENT
  Sex: Female
  Weight: 47 kg

DRUGS (2)
  1. BEVACIZUMAB [Suspect]
     Dosage: FREQUENCY: P3W, PATIENT WAS WITHDRAWN FROM THE STUDY.
     Route: 042
     Dates: start: 20090109, end: 20090722
  2. DOCETAXEL [Suspect]
     Dosage: FREQUENCY: P3W, PATIENT WAS WITHDRAWN FROM THE STUDY.
     Route: 042
     Dates: start: 20090109, end: 20090722

REACTIONS (1)
  - RESPIRATORY FAILURE [None]
